FAERS Safety Report 15703394 (Version 1)
Quarter: 2018Q4

REPORT INFORMATION
  Report Type: Spontaneous
  Country: US (occurrence: US)
  Receive Date: 20181127
  Receipt Date: 20181127
  Transmission Date: 20190205
  Serious: No
  Sender: FDA-Public Use
  Company Number: None

PATIENT
  Sex: Female

DRUGS (3)
  1. DITROPAN [Suspect]
     Active Substance: OXYBUTYNIN CHLORIDE
  2. TOVIAZ [Suspect]
     Active Substance: FESOTERODINE FUMARATE
  3. VESICARE [Suspect]
     Active Substance: SOLIFENACIN SUCCINATE

REACTIONS (2)
  - Dry mouth [None]
  - Drug ineffective [None]
